FAERS Safety Report 16306507 (Version 2)
Quarter: 2020Q4

REPORT INFORMATION
  Report Type: Spontaneous
  Country: US (occurrence: US)
  Receive Date: 20190513
  Receipt Date: 20201224
  Transmission Date: 20210113
  Serious: Yes (Other)
  Sender: FDA-Public Use
  Company Number: US-ASTRAZENECA-2019SE63918

PATIENT
  Age: 19788 Day
  Sex: Female
  Weight: 129.3 kg

DRUGS (91)
  1. ATORVASTATIN [Concomitant]
     Active Substance: ATORVASTATIN
     Indication: BLOOD CHOLESTEROL ABNORMAL
  2. SERTRALINE [Concomitant]
     Active Substance: SERTRALINE HYDROCHLORIDE
  3. TIOTROPIUM [Concomitant]
     Active Substance: TIOTROPIUM
  4. SODIUM CHLORIDE. [Concomitant]
     Active Substance: SODIUM CHLORIDE
  5. CARBIDOPA. [Concomitant]
     Active Substance: CARBIDOPA
  6. TRAZODONE [Concomitant]
     Active Substance: TRAZODONE HYDROCHLORIDE
  7. AUGMENTIN [Concomitant]
     Active Substance: AMOXICILLIN\CLAVULANATE POTASSIUM
  8. SENNA [Concomitant]
     Active Substance: SENNA LEAF\SENNOSIDES\SENNOSIDES A AND B
  9. NEBULIZER [Concomitant]
     Active Substance: DEVICE
     Indication: CHRONIC OBSTRUCTIVE PULMONARY DISEASE
  10. AMLODIPINE BESYLATE. [Concomitant]
     Active Substance: AMLODIPINE BESYLATE
  11. TRAZODONE HYDROCHLORIDE. [Concomitant]
     Active Substance: TRAZODONE HYDROCHLORIDE
  12. SENNOSIDES-DOCUSATE SODIUM [Concomitant]
     Active Substance: DOCUSATE SODIUM\SENNOSIDES
  13. LEVODOPA [Concomitant]
     Active Substance: LEVODOPA
  14. NARCAN [Concomitant]
     Active Substance: NALOXONE HYDROCHLORIDE
  15. PLENVU [Concomitant]
     Active Substance: ASCORBIC ACID\POLYETHYLENE GLYCOL 3350\POTASSIUM CHLORIDE\SODIUM ASCORBATE\SODIUM CHLORIDE\SODIUM SULFATE
  16. HYDROXYZINE [Concomitant]
     Active Substance: HYDROXYZINE HYDROCHLORIDE
  17. MEPERIDINE [Concomitant]
     Active Substance: MEPERIDINE
  18. TESSALON [Concomitant]
     Active Substance: BENZONATATE
  19. CARTAVIL [Concomitant]
     Active Substance: UNSPECIFIED INGREDIENT
     Indication: CARDIAC DISORDER
  20. GABAPENTIN. [Concomitant]
     Active Substance: GABAPENTIN
     Indication: NEURALGIA
  21. FISH OIL [Concomitant]
     Active Substance: FISH OIL
     Indication: CARDIAC DISORDER
  22. FLAGYL [Concomitant]
     Active Substance: METRONIDAZOLE\METRONIDAZOLE HYDROCHLORIDE
  23. ZOLOFT [Concomitant]
     Active Substance: SERTRALINE HYDROCHLORIDE
  24. MAGNESIUM HYDROXIDE. [Concomitant]
     Active Substance: MAGNESIUM HYDROXIDE
  25. LISINOPRIL. [Concomitant]
     Active Substance: LISINOPRIL
  26. SINEMET [Concomitant]
     Active Substance: CARBIDOPA\LEVODOPA
  27. ATROPINE SULFATE. [Concomitant]
     Active Substance: ATROPINE SULFATE
  28. METFORMIN HYDROCHLORIDE. [Concomitant]
     Active Substance: METFORMIN HYDROCHLORIDE
  29. PREVACID [Suspect]
     Active Substance: LANSOPRAZOLE
     Indication: GASTROOESOPHAGEAL REFLUX DISEASE
     Route: 065
     Dates: start: 20061022, end: 20061115
  30. INSULIN [Concomitant]
     Active Substance: INSULIN NOS
     Indication: DIABETES MELLITUS
  31. PROVENTIL [Concomitant]
     Active Substance: ALBUTEROL
  32. MAGNESIUM SULPHATE [Concomitant]
     Active Substance: MAGNESIUM SULFATE
  33. ONDANSETRON [Concomitant]
     Active Substance: ONDANSETRON
  34. HUMALOG [Concomitant]
     Active Substance: INSULIN LISPRO
  35. TAMSULOSIN [Concomitant]
     Active Substance: TAMSULOSIN
  36. POLYETHYLENE GLYCOL [Concomitant]
     Active Substance: POLYETHYLENE GLYCOLS
  37. SMZ/TMP [Concomitant]
     Active Substance: SULFAMETHOXAZOLE\TRIMETHOPRIM
  38. RELION [Concomitant]
  39. BYDUREON [Concomitant]
     Active Substance: EXENATIDE
  40. MORPHINE SULFATE. [Concomitant]
     Active Substance: MORPHINE SULFATE
  41. CINNAMON. [Concomitant]
     Active Substance: CINNAMON
  42. ROCURONIUM [Concomitant]
     Active Substance: ROCURONIUM BROMIDE
  43. PROTONIX [Suspect]
     Active Substance: PANTOPRAZOLE SODIUM
     Indication: GASTROOESOPHAGEAL REFLUX DISEASE
     Dosage: GENERIC
     Route: 065
     Dates: start: 20140202, end: 20140210
  44. VITAMIN C [Concomitant]
     Active Substance: ASCORBIC ACID
     Indication: IMMUNE SYSTEM DISORDER
  45. LACTOBACILLUS ACIDOPHILUS\LACTOBACILLUS BULGARICUS [Concomitant]
     Active Substance: LACTOBACILLUS ACIDOPHILUS\LACTOBACILLUS DELBRUECKII SUBSP. BULGARICUS
  46. ZOSYN [Concomitant]
     Active Substance: PIPERACILLIN SODIUM\TAZOBACTAM SODIUM
  47. METFORMIN [Concomitant]
     Active Substance: METFORMIN HYDROCHLORIDE
  48. OXYCODONE/ACETAMINOPHEN [Concomitant]
     Active Substance: ACETAMINOPHEN\OXYCODONE HYDROCHLORIDE
  49. ZINCATE [Concomitant]
  50. DULAGLUTIDE. [Concomitant]
     Active Substance: DULAGLUTIDE
  51. EPHEDRINE. [Concomitant]
     Active Substance: EPHEDRINE
  52. CEFDINIR. [Concomitant]
     Active Substance: CEFDINIR
  53. HYDROXYZINE HYDROCHLORIDE. [Concomitant]
     Active Substance: HYDROXYZINE HYDROCHLORIDE
  54. PRILOSEC [Suspect]
     Active Substance: OMEPRAZOLE MAGNESIUM
     Indication: GASTROOESOPHAGEAL REFLUX DISEASE
     Route: 048
  55. VITAMIN B12 [Concomitant]
     Active Substance: CYANOCOBALAMIN
     Indication: ANAEMIA
  56. ROCEPHIN [Concomitant]
     Active Substance: CEFTRIAXONE SODIUM
  57. GLIMEPIRIDE. [Concomitant]
     Active Substance: GLIMEPIRIDE
  58. CLINDA [Concomitant]
     Active Substance: CLINDAMYCIN HYDROCHLORIDE
  59. ENOXAPARIN [Concomitant]
     Active Substance: ENOXAPARIN
  60. JANUVIA [Concomitant]
     Active Substance: SITAGLIPTIN PHOSPHATE
  61. VANCOMYCIN [Concomitant]
     Active Substance: VANCOMYCIN
  62. DEXTROSE. [Concomitant]
     Active Substance: DEXTROSE
  63. ROXICODONE [Concomitant]
     Active Substance: OXYCODONE HYDROCHLORIDE
  64. LOVENOX [Concomitant]
     Active Substance: ENOXAPARIN SODIUM
  65. FENTANYL. [Concomitant]
     Active Substance: FENTANYL
  66. PIOGLITAZONE. [Concomitant]
     Active Substance: PIOGLITAZONE
  67. DEXCOM [Concomitant]
  68. MOTRIN [Concomitant]
     Active Substance: IBUPROFEN
  69. CEROVITE [Concomitant]
     Active Substance: FOLIC ACID\IRON
  70. MELATONIN [Concomitant]
     Active Substance: MELATONIN
  71. LATEX [Concomitant]
     Active Substance: NATURAL LATEX RUBBER
  72. PRILOSEC [Suspect]
     Active Substance: OMEPRAZOLE MAGNESIUM
     Indication: GASTROOESOPHAGEAL REFLUX DISEASE
     Dosage: GENERIC
     Route: 065
     Dates: start: 20080801, end: 20160310
  73. VITAMIN D [Concomitant]
     Active Substance: VITAMIN D NOS
     Indication: BLOOD CALCIUM
  74. SPIRIVA [Concomitant]
     Active Substance: TIOTROPIUM BROMIDE MONOHYDRATE
  75. ACETAMINOPHEN. [Concomitant]
     Active Substance: ACETAMINOPHEN
  76. CYCLOBENZAPRINE. [Concomitant]
     Active Substance: CYCLOBENZAPRINE
  77. ALENDRONATE [Concomitant]
     Active Substance: ALENDRONATE SODIUM
  78. IOPAMIDOL [Concomitant]
     Active Substance: IOPAMIDOL
  79. CIALIS [Concomitant]
     Active Substance: TADALAFIL
  80. PROMETHAZINE HCL [Concomitant]
     Active Substance: PROMETHAZINE HYDROCHLORIDE
  81. METOPROLOL TARTRATE. [Concomitant]
     Active Substance: METOPROLOL TARTRATE
  82. NOVOLOG [Concomitant]
     Active Substance: INSULIN ASPART
     Indication: BLOOD GLUCOSE FLUCTUATION
  83. CITURALIN [Concomitant]
     Indication: ADJUSTMENT DISORDER WITH ANXIETY
  84. HEPARIN [Concomitant]
     Active Substance: HEPARIN SODIUM
  85. METRONIDAZOLE. [Concomitant]
     Active Substance: METRONIDAZOLE
  86. BISACODYL. [Concomitant]
     Active Substance: BISACODYL
  87. BASAGLAR [Concomitant]
     Active Substance: INSULIN GLARGINE
  88. CEFUROXIME AXETIL. [Concomitant]
     Active Substance: CEFUROXIME AXETIL
  89. LACTOBACILLUS ACIDOPHILUS [Concomitant]
     Active Substance: LACTOBACILLUS ACIDOPHILUS
  90. FLORANEX [Concomitant]
     Active Substance: LACTOBACILLUS ACIDOPHILUS\LACTOBACILLUS DELBRUECKII SUBSP. BULGARICUS
  91. ESCITALOPRAM [Concomitant]
     Active Substance: ESCITALOPRAM OXALATE

REACTIONS (3)
  - Renal failure [Unknown]
  - Chronic kidney disease [Not Recovered/Not Resolved]
  - Acute kidney injury [Unknown]

NARRATIVE: CASE EVENT DATE: 20140202
